FAERS Safety Report 25008838 (Version 1)
Quarter: 2025Q1

REPORT INFORMATION
  Report Type: Spontaneous
  Country: US (occurrence: None)
  Receive Date: 20250224
  Receipt Date: 20250224
  Transmission Date: 20250409
  Serious: Yes (Life-Threatening, Hospitalization)
  Sender: FDA-CTU
  Company Number: None

PATIENT
  Age: 88 Year
  Sex: Female

DRUGS (2)
  1. SULFAMETHOXAZOLE\TRIMETHOPRIM [Suspect]
     Active Substance: SULFAMETHOXAZOLE\TRIMETHOPRIM
  2. ENALAPRIL [Suspect]
     Active Substance: ENALAPRIL

REACTIONS (9)
  - Anuria [None]
  - Blood potassium increased [None]
  - Blood creatinine increased [None]
  - Atrioventricular block complete [None]
  - Sepsis [None]
  - Haemofiltration [None]
  - Dysphagia [None]
  - Lethargy [None]
  - Encephalopathy [None]

NARRATIVE: CASE EVENT DATE: 20240105
